FAERS Safety Report 4660073-8 (Version None)
Quarter: 2005Q2

REPORT INFORMATION
  Report Type: 
  Country: None (occurrence: None)
  Receive Date: 20050512
  Receipt Date: 20050224
  Transmission Date: 20051028
  Serious: No
  Sender: FDA-Public Use
  Company Number: US-GLAXOSMITHKLINE-A0547152A

PATIENT
  Age: 47 Year
  Sex: Female
  Weight: 65.9 kg

DRUGS (1)
  1. RELAFEN [Suspect]
     Indication: RHEUMATOID ARTHRITIS
     Dosage: 750MG TWICE PER DAY
     Route: 048
     Dates: start: 20021223, end: 20050217

REACTIONS (1)
  - SWELLING FACE [None]
